FAERS Safety Report 4381501-1 (Version None)
Quarter: 2004Q2

REPORT INFORMATION
  Report Type: 
  Country: None (occurrence: None)
  Receive Date: 20040621
  Receipt Date: 20040615
  Transmission Date: 20050107
  Serious: Yes (Hospitalization)
  Sender: FDA-Public Use
  Company Number: US-GLAXOSMITHKLINE-A0514691A

PATIENT
  Age: 50 Year
  Sex: Female

DRUGS (8)
  1. ESKALITH [Suspect]
     Dosage: 450MG TWICE PER DAY
     Route: 048
     Dates: start: 19840101
  2. ADVAIR DISKUS 100/50 [Suspect]
     Indication: INFLUENZA
     Dosage: 1PUFF TWICE PER DAY
     Route: 055
     Dates: start: 20030101, end: 20030117
  3. CIPRO [Suspect]
     Dates: start: 20030101, end: 20030119
  4. ZYRTEC [Suspect]
     Dates: start: 20030101, end: 20030119
  5. NAVANE [Concomitant]
     Dosage: 10MG THREE TIMES PER DAY
  6. BENZTROPINE MESYLATE [Concomitant]
     Dosage: 2MG TWICE PER DAY
  7. RISPERDAL [Concomitant]
     Dosage: 3MG PER DAY
  8. LOTENSIN [Concomitant]

REACTIONS (9)
  - DROOLING [None]
  - DRUG INTERACTION [None]
  - DRUG LEVEL INCREASED [None]
  - DYSKINESIA [None]
  - HYPERSOMNIA [None]
  - INFLUENZA [None]
  - SKIN INFECTION [None]
  - THERAPEUTIC AGENT TOXICITY [None]
  - TREMOR [None]
